FAERS Safety Report 12487817 (Version 1)
Quarter: 2016Q2

REPORT INFORMATION
  Report Type: Spontaneous
  Country: US (occurrence: US)
  Receive Date: 20160622
  Receipt Date: 20160622
  Transmission Date: 20160815
  Serious: Yes (Hospitalization)
  Sender: FDA-Public Use
  Company Number: PHEH2016US015029

PATIENT
  Sex: Female
  Weight: 178.8 kg

DRUGS (1)
  1. LETROZOL [Suspect]
     Active Substance: LETROZOLE
     Indication: BREAST CANCER METASTATIC
     Route: 065

REACTIONS (6)
  - Diarrhoea [Unknown]
  - Eating disorder [Unknown]
  - Asthenia [Unknown]
  - Pneumonia [Unknown]
  - Nausea [Unknown]
  - Vomiting [Unknown]
